FAERS Safety Report 20549442 (Version 2)
Quarter: 2022Q1

REPORT INFORMATION
  Report Type: Spontaneous
  Country: US (occurrence: US)
  Receive Date: 20220303
  Receipt Date: 20220308
  Transmission Date: 20220423
  Serious: Yes (Hospitalization)
  Sender: FDA-Public Use
  Company Number: US-ABBVIE-22K-163-4300567-00

PATIENT
  Age: 67 Year
  Sex: Female
  Weight: 77.180 kg

DRUGS (5)
  1. HUMIRA [Suspect]
     Active Substance: ADALIMUMAB
     Indication: Psoriatic arthropathy
     Route: 058
     Dates: end: 202110
  2. HUMIRA [Suspect]
     Active Substance: ADALIMUMAB
     Indication: Psoriasis
     Route: 058
     Dates: start: 202110, end: 2021
  3. HUMIRA [Suspect]
     Active Substance: ADALIMUMAB
     Route: 058
     Dates: start: 202202
  4. COVID-19 VACCINE [Concomitant]
     Indication: COVID-19 immunisation
     Route: 030
     Dates: start: 20210211, end: 20210211
  5. COVID-19 VACCINE [Concomitant]
     Route: 030
     Dates: start: 20210311, end: 20210311

REACTIONS (10)
  - SARS-CoV-2 test positive [Recovered/Resolved]
  - Oxygen saturation decreased [Unknown]
  - Pneumonia [Recovered/Resolved]
  - Asthenia [Unknown]
  - Anosmia [Recovered/Resolved]
  - Sinonasal obstruction [Recovered/Resolved]
  - Malaise [Unknown]
  - Ageusia [Recovered/Resolved]
  - Psoriasis [Unknown]
  - Headache [Recovered/Resolved]

NARRATIVE: CASE EVENT DATE: 20211001
